FAERS Safety Report 23867265 (Version 12)
Quarter: 2025Q4

REPORT INFORMATION
  Report Type: Report from Study
  Country: EU (occurrence: EU)
  Receive Date: 20240517
  Receipt Date: 20251125
  Transmission Date: 20260117
  Serious: No
  Sender: NOVARTIS
  Company Number: EU-002147023-NVSC2024DE042486

PATIENT
  Age: 37 Year
  Sex: Female
  Weight: 93 kg

DRUGS (36)
  1. COSENTYX [Suspect]
     Active Substance: SECUKINUMAB
     Indication: Hidradenitis
     Dosage: 300 MG, ONCE (PRE-FILLED PEN)
     Route: 058
     Dates: start: 20240216, end: 20240216
  2. COSENTYX [Suspect]
     Active Substance: SECUKINUMAB
     Dosage: 300 MG, ONCE (PRE-FILLED PEN)
     Route: 058
     Dates: start: 20240223, end: 20240223
  3. COSENTYX [Suspect]
     Active Substance: SECUKINUMAB
     Dosage: 300 MG, ONCE (PRE-FILLED PEN)
     Route: 058
     Dates: start: 20240301, end: 20240301
  4. COSENTYX [Suspect]
     Active Substance: SECUKINUMAB
     Dosage: 300 MG, ONCE (PRE-FILLED PEN)
     Route: 058
     Dates: start: 20240308, end: 20240308
  5. COSENTYX [Suspect]
     Active Substance: SECUKINUMAB
     Dosage: 300 MG, ONCE (PRE-FILLED PEN)
     Route: 058
     Dates: start: 20240315, end: 20240315
  6. COSENTYX [Suspect]
     Active Substance: SECUKINUMAB
     Dosage: 300 MG, ONCE (PRE-FILLED PEN)
     Route: 058
     Dates: start: 20240412, end: 20240412
  7. COSENTYX [Suspect]
     Active Substance: SECUKINUMAB
     Dosage: 300 MG, ONCE (PRE-FILLED SYRINGE)
     Route: 058
     Dates: start: 20240510, end: 20240510
  8. COSENTYX [Suspect]
     Active Substance: SECUKINUMAB
     Dosage: 300 MG, ONCE (PRE-FILLED PEN)
     Route: 058
     Dates: start: 20240607, end: 20240607
  9. COSENTYX [Suspect]
     Active Substance: SECUKINUMAB
     Dosage: 300 MG, ONCE (PRE-FILLED PEN)
     Route: 058
     Dates: start: 20240705, end: 20240705
  10. COSENTYX [Suspect]
     Active Substance: SECUKINUMAB
     Dosage: 300 MG, ONC (PRE-FILLED PEN)
     Route: 058
     Dates: start: 20240802, end: 20240802
  11. COSENTYX [Suspect]
     Active Substance: SECUKINUMAB
     Dosage: 300 MG, ONCE (PRE-FILLED PEN)
     Route: 058
     Dates: start: 20240906, end: 20240906
  12. COSENTYX [Suspect]
     Active Substance: SECUKINUMAB
     Dosage: 300 MG, ONCE (PRE-FILLED PEN)
     Route: 058
     Dates: start: 20241004, end: 20241004
  13. COSENTYX [Suspect]
     Active Substance: SECUKINUMAB
     Dosage: 300 MG, ONCE (PRE-FILLED PEN)
     Route: 058
     Dates: start: 20241101, end: 20241101
  14. COSENTYX [Suspect]
     Active Substance: SECUKINUMAB
     Dosage: 300 MG, ONCE (PRE-FILLED SYRINGE)
     Route: 058
     Dates: start: 20241129, end: 20241129
  15. COSENTYX [Suspect]
     Active Substance: SECUKINUMAB
     Dosage: 300 MG, ONCE (PRE-FILLED SYRINGE)
     Route: 058
     Dates: start: 20241213, end: 20241213
  16. COSENTYX [Suspect]
     Active Substance: SECUKINUMAB
     Dosage: 300 MG, ONCE (PRE-FILLED PEN)
     Route: 058
     Dates: start: 20241227, end: 20241227
  17. COSENTYX [Suspect]
     Active Substance: SECUKINUMAB
     Dosage: 300 MG, ONCE (PRE-FILLED PEN)
     Route: 058
     Dates: start: 20250110, end: 20250110
  18. COSENTYX [Suspect]
     Active Substance: SECUKINUMAB
     Dosage: 300 MG, ONCE (PRE-FILLED PEN)
     Route: 058
     Dates: start: 20250124, end: 20250124
  19. COSENTYX [Suspect]
     Active Substance: SECUKINUMAB
     Dosage: 300 MG, ONCE (PRE-FILLED PEN)
     Route: 058
     Dates: start: 20250207, end: 20250207
  20. COSENTYX [Suspect]
     Active Substance: SECUKINUMAB
     Dosage: 300 MG, ONCE (PRE-FILLED PEN)
     Route: 058
     Dates: start: 20250221, end: 20250221
  21. COSENTYX [Suspect]
     Active Substance: SECUKINUMAB
     Dosage: 300 MG, ONCE (PRE-FILLED PEN)
     Route: 058
     Dates: start: 20250307, end: 20250307
  22. COSENTYX [Suspect]
     Active Substance: SECUKINUMAB
     Dosage: 300 MG, ONCE (PRE-FILLED PEN)
     Route: 058
     Dates: start: 20250321, end: 20250321
  23. COSENTYX [Suspect]
     Active Substance: SECUKINUMAB
     Dosage: 300 MG, ONCE (PRE-FILLED PEN)
     Route: 058
     Dates: start: 20250404, end: 20250404
  24. COSENTYX [Suspect]
     Active Substance: SECUKINUMAB
     Dosage: 300 MG, ONCE (PRE-FILLED PEN)
     Route: 058
     Dates: start: 20250418, end: 20250418
  25. COSENTYX [Suspect]
     Active Substance: SECUKINUMAB
     Dosage: 300 MG, ONCE (PRE-FILLED SYRINGE)
     Route: 058
     Dates: start: 20250502, end: 20250502
  26. COSENTYX [Suspect]
     Active Substance: SECUKINUMAB
     Dosage: 300 MG, ONCE (PRE-FILLED SYRINGE)
     Route: 058
     Dates: start: 20250516, end: 20250516
  27. COSENTYX [Suspect]
     Active Substance: SECUKINUMAB
     Dosage: 300 MG, ONCE (PRE-FILLED PEN)
     Route: 058
     Dates: start: 20250530, end: 20250530
  28. COSENTYX [Suspect]
     Active Substance: SECUKINUMAB
     Dosage: 300 MG, ONCE (PRE-FILLED PEN)
     Route: 058
     Dates: start: 20250614, end: 20250614
  29. COSENTYX [Suspect]
     Active Substance: SECUKINUMAB
     Dosage: 300 MG, ONCE (PRE-FILLED PEN)
     Route: 058
     Dates: start: 20250627, end: 20250627
  30. COSENTYX [Suspect]
     Active Substance: SECUKINUMAB
     Dosage: 300 MG, ONCE (PRE-FILLED PEN)
     Route: 058
     Dates: start: 20250711, end: 20250711
  31. COSENTYX [Suspect]
     Active Substance: SECUKINUMAB
     Dosage: 300 MG, ONCE (PRE-FILLED PEN)
     Route: 058
     Dates: start: 20250725, end: 20250725
  32. COSENTYX [Suspect]
     Active Substance: SECUKINUMAB
     Dosage: 300 MG, ONCE (PRE-FILLED PEN)
     Route: 058
     Dates: start: 20250808, end: 20250808
  33. COSENTYX [Suspect]
     Active Substance: SECUKINUMAB
     Dosage: 300 MG, ONCE (PRE-FILLED SYRINGE)
     Route: 058
     Dates: start: 20250822, end: 20250822
  34. COSENTYX [Suspect]
     Active Substance: SECUKINUMAB
     Dosage: 300 MG, ONCE (PRE-FILLED SYRINGE)
     Route: 058
     Dates: start: 20250905, end: 20250905
  35. COSENTYX [Suspect]
     Active Substance: SECUKINUMAB
     Dosage: 300 MG, ONCE (PRE-FILLED SYRINGE)
     Route: 058
     Dates: start: 20250919, end: 20250919
  36. COSENTYX [Suspect]
     Active Substance: SECUKINUMAB
     Dosage: 300 MG, ONCE (PRE-FILLED SYRINGE)
     Route: 058
     Dates: start: 20251003, end: 20251003

REACTIONS (7)
  - Hidradenitis [Recovered/Resolved]
  - Subcutaneous abscess [Recovered/Resolved]
  - Subcutaneous abscess [Recovered/Resolved]
  - Nodule [Recovered/Resolved]
  - Breast mass [Recovered/Resolved]
  - Blepharitis [Recovered/Resolved]
  - Breast mass [Recovered/Resolved]

NARRATIVE: CASE EVENT DATE: 20240223
